FAERS Safety Report 6425955-5 (Version None)
Quarter: 2009Q4

REPORT INFORMATION
  Report Type: 
  Country: None (occurrence: None)
  Receive Date: 20091103
  Receipt Date: 20091103
  Transmission Date: 20100525
  Serious: No
  Sender: FDA-Public Use
  Company Number: None

PATIENT
  Age: 46 Year
  Sex: Male

DRUGS (1)
  1. TACROLIMUS [Suspect]
     Dates: start: 20090709

REACTIONS (2)
  - IMMUNOSUPPRESSION [None]
  - INFECTION [None]
